FAERS Safety Report 15110820 (Version 5)
Quarter: 2019Q2

REPORT INFORMATION
  Report Type: Spontaneous
  Country: US (occurrence: US)
  Receive Date: 20180705
  Receipt Date: 20190429
  Transmission Date: 20190711
  Serious: Yes (Other)
  Sender: FDA-Public Use
  Company Number: US-DSJP-DSU-2016-115196

PATIENT

DRUGS (13)
  1. TRIBENZOR [Suspect]
     Active Substance: AMLODIPINE BESYLATE\HYDROCHLOROTHIAZIDE\OLMESARTAN MEDOXOMIL
     Indication: HYPERTENSION
     Dosage: 20-5-12.5 MG, UNK
     Dates: end: 20160927
  2. SIMVASTATIN. [Concomitant]
     Active Substance: SIMVASTATIN
     Indication: BLOOD CHOLESTEROL
     Dosage: 20 MG, QD
     Dates: start: 2009
  3. BENICAR HCT [Suspect]
     Active Substance: HYDROCHLOROTHIAZIDE\OLMESARTAN MEDOXOMIL
     Indication: PRODUCT USED FOR UNKNOWN INDICATION
     Dosage: UNK
  4. CLONIDINE HCL [Concomitant]
     Active Substance: CLONIDINE HYDROCHLORIDE
     Indication: HYPERTENSION
     Dosage: 0.1 MG, AS NEEDED
     Dates: start: 2006
  5. BENICAR [Suspect]
     Active Substance: OLMESARTAN MEDOXOMIL
     Indication: HYPERTENSION
     Dosage: 40 MG, BID
     Dates: start: 200601, end: 2008
  6. BENICAR [Suspect]
     Active Substance: OLMESARTAN MEDOXOMIL
     Dosage: UNK
     Dates: start: 2012
  7. TRIBENZOR [Suspect]
     Active Substance: AMLODIPINE BESYLATE\HYDROCHLOROTHIAZIDE\OLMESARTAN MEDOXOMIL
     Dosage: 40-5-25 MG, QD
     Route: 048
     Dates: start: 201212, end: 20141017
  8. TRIBENZOR [Suspect]
     Active Substance: AMLODIPINE BESYLATE\HYDROCHLOROTHIAZIDE\OLMESARTAN MEDOXOMIL
     Dosage: 40-5-12.5 MG, UNK
     Dates: start: 20141017, end: 20150902
  9. DIAZEPAM. [Concomitant]
     Active Substance: DIAZEPAM
     Indication: SEDATIVE THERAPY
     Dosage: 5 MG, AS NEEDED
     Dates: start: 2005
  10. HYOSCYAMINE. [Concomitant]
     Active Substance: HYOSCYAMINE
     Indication: ABDOMINAL PAIN UPPER
     Dosage: 0.125 MG, AS NEEDED
     Dates: start: 2006
  11. TRIBENZOR [Suspect]
     Active Substance: AMLODIPINE BESYLATE\HYDROCHLOROTHIAZIDE\OLMESARTAN MEDOXOMIL
     Dosage: 40-5-12.5 MG, QD
     Route: 048
  12. ZOLPIDEM [Concomitant]
     Active Substance: ZOLPIDEM\ZOLPIDEM TARTRATE
     Indication: SLEEP DISORDER
     Dosage: 10 MG, AS NEEDED
     Dates: start: 2007
  13. OMEPRAZOLE. [Concomitant]
     Active Substance: OMEPRAZOLE
     Indication: GASTROOESOPHAGEAL REFLUX DISEASE
     Dosage: 20 MG, QD
     Dates: start: 2009

REACTIONS (18)
  - Acute kidney injury [Unknown]
  - Rectal polyp [Unknown]
  - Gastritis haemorrhagic [Not Recovered/Not Resolved]
  - Iritis [Recovering/Resolving]
  - Large intestinal stenosis [Not Recovered/Not Resolved]
  - Diverticulitis [Unknown]
  - Sprue-like enteropathy [Recovered/Resolved]
  - Coeliac disease [Recovering/Resolving]
  - Impaired gastric emptying [Recovered/Resolved]
  - Gastric ulcer [Unknown]
  - Haemorrhoids [Unknown]
  - Oedema [Not Recovered/Not Resolved]
  - Irritable bowel syndrome [Recovering/Resolving]
  - Gastrooesophageal reflux disease [Not Recovered/Not Resolved]
  - Large intestine polyp [Not Recovered/Not Resolved]
  - Diverticulum [Unknown]
  - Colitis ulcerative [Not Recovered/Not Resolved]
  - Hiatus hernia [Unknown]

NARRATIVE: CASE EVENT DATE: 20050224
